FAERS Safety Report 8115833-8 (Version None)
Quarter: 2012Q1

REPORT INFORMATION
  Report Type: 
  Country: None (occurrence: None)
  Receive Date: 20120206
  Receipt Date: 20120131
  Transmission Date: 20120608
  Serious: Yes (Hospitalization)
  Sender: FDA-Public Use
  Company Number: CA-SANOFI-AVENTIS-2011SA079913

PATIENT
  Age: 69 Year
  Sex: Male
  Weight: 58 kg

DRUGS (12)
  1. SENNA [Concomitant]
     Dates: start: 20111014
  2. ONDANSETRON HCL [Concomitant]
     Dates: start: 20111024
  3. NABILONE [Concomitant]
     Dates: start: 20111028
  4. LEVOTHYROXINE SODIUM [Concomitant]
  5. RANITIDINE [Concomitant]
     Dates: start: 20111115
  6. DOCETAXEL [Suspect]
     Indication: BLADDER CANCER
     Route: 041
     Dates: start: 20111024, end: 20111024
  7. BEZAFIBRATE [Concomitant]
  8. TINZAPARIN [Concomitant]
     Dates: start: 20101201
  9. PROCHLORPERAZINE [Concomitant]
     Dates: start: 20111115
  10. DEXAMETHASONE [Concomitant]
     Dates: start: 20111023
  11. LACTULOSE [Concomitant]
     Dates: start: 20111025
  12. INVESTIGATIONAL DRUG [Suspect]
     Indication: BLADDER CANCER
     Route: 042
     Dates: start: 20111024, end: 20111024

REACTIONS (1)
  - ARTERITIS INFECTIVE [None]
